FAERS Safety Report 5789438-8 (Version None)
Quarter: 2008Q2

REPORT INFORMATION
  Report Type: 
  Country: None (occurrence: None)
  Receive Date: 20080626
  Receipt Date: 20080311
  Transmission Date: 20081010
  Serious: No
  Sender: FDA-Public Use
  Company Number: US-ASTRAZENECA-2008UW01612

PATIENT
  Age: 68 Year
  Sex: Female
  Weight: 83.6 kg

DRUGS (4)
  1. PULMICORT-100 [Suspect]
     Indication: ASTHMA
     Route: 055
  2. SEROVENT [Concomitant]
  3. PROVENTIL [Concomitant]
  4. ZESTRIL [Concomitant]

REACTIONS (1)
  - GLOSSODYNIA [None]
